FAERS Safety Report 9467583 (Version 1)
Quarter: 2013Q3

REPORT INFORMATION
  Report Type: Spontaneous
  Country: FR (occurrence: FR)
  Receive Date: 20130821
  Receipt Date: 20130821
  Transmission Date: 20140515
  Serious: Yes (Other)
  Sender: FDA-Public Use
  Company Number: FR-RANBAXY-2013RR-72214

PATIENT
  Sex: Male

DRUGS (6)
  1. QUETIAPINE [Suspect]
     Indication: SCHIZOPHRENIA
     Dosage: 800 MG/DAY
     Route: 065
  2. AMISULPRIDE [Suspect]
     Indication: SCHIZOPHRENIA
     Dosage: UP TO 1200 MG/DAY
     Route: 065
  3. CLOZAPINE [Suspect]
     Indication: SCHIZOPHRENIA
     Dosage: UP TO 400 MG/DAY
     Route: 065
  4. HALOPERIDOL [Suspect]
     Indication: SCHIZOPHRENIA
     Dosage: UP TO 20 MG/DAY
     Route: 065
  5. OLANZAPINE [Suspect]
     Indication: SCHIZOPHRENIA
     Dosage: UP TO 65 MG/DAY
     Route: 065
  6. RISPERIDONE [Suspect]
     Indication: SCHIZOPHRENIA
     Dosage: UP TO 10 MG/DAY
     Route: 065

REACTIONS (5)
  - Akathisia [Unknown]
  - Dystonia [Unknown]
  - Oculogyric crisis [Unknown]
  - Tremor [Unknown]
  - Tardive dyskinesia [Unknown]
